FAERS Safety Report 24026406 (Version 1)
Quarter: 2024Q2

REPORT INFORMATION
  Report Type: Spontaneous
  Country: US (occurrence: US)
  Receive Date: 20240628
  Receipt Date: 20240628
  Transmission Date: 20240716
  Serious: No
  Sender: FDA-Public Use
  Company Number: US-Accord-405375

PATIENT
  Age: 73 Year
  Sex: Female
  Weight: 44 kg

DRUGS (2)
  1. CLONAZEPAM [Suspect]
     Active Substance: CLONAZEPAM
     Indication: Tinnitus
     Dosage: 1MG, HALF TABLET, ORAL, EVERY NIGHT AT BEDTIME
     Route: 048
  2. VITAMINS NOS [Concomitant]
     Active Substance: VITAMINS

REACTIONS (5)
  - Nausea [Recovered/Resolved]
  - Drug ineffective for unapproved indication [Unknown]
  - Malaise [Unknown]
  - Wrong technique in product usage process [Unknown]
  - Suspected counterfeit product [Unknown]
